FAERS Safety Report 19686731 (Version 2)
Quarter: 2022Q3

REPORT INFORMATION
  Report Type: Spontaneous
  Country: BE (occurrence: BE)
  Receive Date: 20210811
  Receipt Date: 20220725
  Transmission Date: 20221027
  Serious: Yes (Other)
  Sender: FDA-Public Use
  Company Number: None

PATIENT
  Age: 63 Year
  Sex: Female
  Weight: 75.5 kg

DRUGS (17)
  1. CETIRIZINE [Suspect]
     Active Substance: CETIRIZINE HYDROCHLORIDE
     Indication: Seasonal allergy
     Dosage: ABOUT 5 YEAR
     Route: 048
     Dates: start: 201704
  2. CETIRIZINE [Suspect]
     Active Substance: CETIRIZINE HYDROCHLORIDE
     Dosage: 1 DOSAGE FORM, QD (ABOUT 5 YEAR)
     Route: 048
  3. SIMVASTATIN [Suspect]
     Active Substance: SIMVASTATIN
     Indication: Hypercholesterolaemia
     Dosage: 1 DOSAGE FORM, PM,TAKEN IN THE EVENING
     Route: 048
  4. PULMICORT TURBUHALER [Suspect]
     Active Substance: BUDESONIDE
     Indication: Bronchitis
     Dosage: 1 DOSAGE FORM, QD
     Route: 048
     Dates: start: 201604
  5. PULMICORT TURBUHALER [Suspect]
     Active Substance: BUDESONIDE
     Indication: Hypercholesterolaemia
     Dosage: ABOUT 3 YEARS AGO
     Route: 048
  6. BILASTINE [Suspect]
     Active Substance: BILASTINE
     Indication: Product used for unknown indication
     Dosage: 1 DOSAGE FORM, QD (ABOUT 5 - 7 YEARS AGO)
     Route: 048
     Dates: start: 2017
  7. BILASTINE [Suspect]
     Active Substance: BILASTINE
     Dosage: (ABOUT 5 - 7 YEARS AGO)
     Route: 048
  8. OXYCONTIN [Suspect]
     Active Substance: OXYCODONE HYDROCHLORIDE
     Indication: Pain
     Dosage: 2 DOSAGE FORM, QD
     Route: 048
     Dates: start: 20170507, end: 20170510
  9. OXYCONTIN [Suspect]
     Active Substance: OXYCODONE HYDROCHLORIDE
     Dosage: (ABOUT 5 YEARS AGO)
     Route: 065
  10. ZOCOR [Suspect]
     Active Substance: SIMVASTATIN
     Indication: Product used for unknown indication
     Dosage: 1 DOSAGE FORM, QD (ABOUT 5 YEARS AGO)
     Route: 048
  11. ZALDIAR [Concomitant]
     Active Substance: ACETAMINOPHEN\TRAMADOL HYDROCHLORIDE
     Indication: Pain
     Dosage: 1 DOSAGE FORM, PRN,UP TO 3 PER DAY
     Route: 065
  12. BROMAZEPAM EG [Concomitant]
     Dosage: 1 DOSAGE FORM, QD,TAKEN BEFORE GOING TO BED
     Route: 065
  13. Pantomed [Concomitant]
     Indication: Gastric disorder
     Dosage: 1 DOSAGE FORM, QD,TAKEN IN THE MORNING SOBERLY
     Route: 065
  14. VERAPAMIL HYDROCHLORIDE [Concomitant]
     Active Substance: VERAPAMIL HYDROCHLORIDE
     Indication: Cardiovascular disorder
     Dosage: 0.5 DOSAGE FORM, QD TAKEN IN THE MORNING
     Route: 065
  15. ACETAMINOPHEN [Concomitant]
     Active Substance: ACETAMINOPHEN
     Indication: Pain
     Dosage: 1 DOSAGE FORM, PRN,UP TO 3 PER DAY
     Route: 065
  16. FENOFIBRATE [Concomitant]
     Active Substance: FENOFIBRATE
     Indication: Hypercholesterolaemia
     Dosage: TAKEN IN THE EVENING, PM
     Route: 065
  17. Mobiflex [Concomitant]
     Indication: Joint dislocation
     Dosage: UNK
     Route: 065

REACTIONS (15)
  - Myalgia [Recovered/Resolved]
  - Arthralgia [Recovered/Resolved]
  - Nausea [Recovered/Resolved]
  - Headache [Recovered/Resolved]
  - Rash erythematous [Recovered/Resolved]
  - Vomiting [Recovered/Resolved]
  - Blood pressure decreased [Recovered/Resolved]
  - Swelling [Recovered/Resolved]
  - Blood pressure increased [Recovered/Resolved]
  - Loss of consciousness [Recovered/Resolved]
  - Dyspnoea [Recovered/Resolved]
  - Arrhythmia [Recovered/Resolved]
  - Dizziness [Unknown]
  - Hypertension [Unknown]
  - Gait disturbance [Unknown]
